FAERS Safety Report 13663761 (Version 1)
Quarter: 2017Q2

REPORT INFORMATION
  Report Type: Spontaneous
  Country: US (occurrence: US)
  Receive Date: 20170619
  Receipt Date: 20170619
  Transmission Date: 20170830
  Serious: No
  Sender: FDA-Public Use
  Company Number: US-BIOGEN-2017BI00416316

PATIENT
  Sex: Male

DRUGS (1)
  1. TECFIDERA [Suspect]
     Active Substance: DIMETHYL FUMARATE
     Indication: MULTIPLE SCLEROSIS
     Dosage: MAINTENANCE DOSE
     Route: 048
     Dates: start: 20150122

REACTIONS (3)
  - Headache [Not Recovered/Not Resolved]
  - Fall [Recovered/Resolved]
  - Concussion [Recovered/Resolved with Sequelae]

NARRATIVE: CASE EVENT DATE: 2017
